FAERS Safety Report 6340467-5 (Version None)
Quarter: 2009Q3

REPORT INFORMATION
  Report Type: 
  Country: None (occurrence: None)
  Receive Date: 20090904
  Receipt Date: 20070907
  Transmission Date: 20100115
  Serious: Yes (Other)
  Sender: FDA-Public Use
  Company Number: US-ASTRAZENECA-2006UW24123

PATIENT
  Age: 17251 Day
  Sex: Female
  Weight: 79.7 kg

DRUGS (27)
  1. SEROQUEL [Suspect]
     Indication: BIPOLAR DISORDER
     Dosage: 100MG-800MG DAILY
     Route: 048
     Dates: start: 20031111
  2. SEROQUEL [Suspect]
     Route: 048
     Dates: start: 20040127
  3. ZYPREXA [Concomitant]
     Dosage: 5 MG AT EVERY MORNING AND 10MG AT NIGHT
     Dates: start: 20030101
  4. NEURONTIN [Concomitant]
     Indication: AFFECTIVE DISORDER
     Route: 048
     Dates: start: 20040101
  5. NEURONTIN [Concomitant]
     Indication: NECK PAIN
     Route: 048
     Dates: start: 20040101
  6. NEURONTIN [Concomitant]
     Indication: BACK PAIN
     Route: 048
     Dates: start: 20040101
  7. NEURONTIN [Concomitant]
     Indication: MUSCULOSKELETAL PAIN
     Route: 048
     Dates: start: 20040101
  8. TOPAMAX [Concomitant]
     Dosage: 50MG-200MG DAILY
     Route: 048
     Dates: start: 20040101
  9. ACTOS [Concomitant]
     Indication: DIABETES MELLITUS
     Dosage: 15MG-45MG DAILY, 45/15MG THREE TABLETS EVERY MORNING
     Dates: start: 20040101
  10. NEXIUM [Concomitant]
     Route: 048
     Dates: start: 20020101
  11. TRAMADOL HCL [Concomitant]
     Dosage: STRENGTH-50 MG  DOSE- 1-2 EVERY 6 HRS PRN DAILY
     Dates: start: 20050101
  12. LEVOTHROID [Concomitant]
     Dosage: 0.088MG-0.125MG DAILY
     Dates: start: 20050101
  13. RESTORIL [Concomitant]
     Dosage: 15MG-50 MG DAILY
     Dates: start: 20020101
  14. KLONOPIN [Concomitant]
     Dosage: STRENGTH- 1 MG  DOSE- 2MG-3MG DAILY
     Route: 048
     Dates: start: 20030101
  15. ESTRADIOL [Concomitant]
     Dates: start: 20020101
  16. LIPITOR [Concomitant]
     Dates: start: 20050101
  17. LEXAPRO [Concomitant]
     Dosage: 10 MG-20MG DAILY
     Dates: start: 20050101
  18. LAMICTAL [Concomitant]
     Dosage: 100MG-200MG DAILY
     Dates: start: 20050101
  19. CELEBREX [Concomitant]
     Dosage: STRENGTH- 200MG  DOSE-200MG-400MG DAILY
     Route: 048
     Dates: start: 20020101
  20. CHLORDIAZEPOXIDE [Concomitant]
     Dosage: 25 MG 3-4 TIMES DAILY
     Dates: start: 20040101
  21. DIAZEPAM [Concomitant]
     Dates: start: 20040101
  22. TIZANIDINE HCL [Concomitant]
     Dates: start: 20040101
  23. PERCOCET [Concomitant]
     Dosage: 1 EVERY 4-6 HOURS AS NEEDED
     Dates: start: 20040101
  24. AMBIEN [Concomitant]
     Dates: start: 20040101
  25. CLINDAMYCIN [Concomitant]
     Indication: PNEUMONIA ASPIRATION
     Dates: start: 20040101
  26. ATIVAN [Concomitant]
     Indication: ALCOHOL WITHDRAWAL SYNDROME
     Dates: start: 20040101
  27. AVAPRO [Concomitant]
     Dates: start: 20040424

REACTIONS (4)
  - DIABETES MELLITUS [None]
  - DIABETIC NEUROPATHY [None]
  - HYPERGLYCAEMIA [None]
  - TYPE 2 DIABETES MELLITUS [None]
